FAERS Safety Report 12738252 (Version 5)
Quarter: 2017Q2

REPORT INFORMATION
  Report Type: Report from Study
  Country: US (occurrence: US)
  Receive Date: 20160913
  Receipt Date: 20170414
  Transmission Date: 20170830
  Serious: Yes (Hospitalization, Other)
  Sender: FDA-Public Use
  Company Number: US-ACTELION-A-US2016-140130

PATIENT
  Age: 60 Year
  Sex: Female
  Weight: 104.31 kg

DRUGS (5)
  1. LETAIRIS [Suspect]
     Active Substance: AMBRISENTAN
     Indication: PRODUCT USED FOR UNKNOWN INDICATION
     Dosage: 10 MG, QD
     Route: 048
     Dates: start: 20151123
  2. ADCIRCA [Concomitant]
     Active Substance: TADALAFIL
  3. UPTRAVI [Suspect]
     Active Substance: SELEXIPAG
     Indication: PULMONARY ARTERIAL HYPERTENSION
     Dosage: 200 MCG, BID
     Route: 048
     Dates: start: 20160720
  4. UPTRAVI [Suspect]
     Active Substance: SELEXIPAG
     Dosage: 1000 MCG, BID
     Route: 048
     Dates: start: 20160720
  5. UPTRAVI [Suspect]
     Active Substance: SELEXIPAG
     Dosage: 1200 MCG, BID
     Route: 048

REACTIONS (14)
  - Intervertebral disc protrusion [Unknown]
  - Spinal operation [Unknown]
  - Gingival pain [Unknown]
  - Lumbar spinal stenosis [Unknown]
  - Toothache [Unknown]
  - Arthralgia [Unknown]
  - Pain in extremity [Unknown]
  - Staphylococcal infection [Unknown]
  - Rheumatoid arthritis [Unknown]
  - Headache [Unknown]
  - Hypoaesthesia [Unknown]
  - Nausea [Unknown]
  - Drug dose omission [Unknown]
  - Foot fracture [Unknown]

NARRATIVE: CASE EVENT DATE: 201607
